FAERS Safety Report 7880969-3 (Version None)
Quarter: 2011Q4

REPORT INFORMATION
  Report Type: 
  Country: None (occurrence: None)
  Receive Date: 20111101
  Receipt Date: 20111021
  Transmission Date: 20120403
  Serious: Yes (Life-Threatening, Hospitalization)
  Sender: FDA-Public Use
  Company Number: CA-ROCHE-1003294

PATIENT
  Sex: Male

DRUGS (4)
  1. SYMBICORT [Concomitant]
  2. XOLAIR [Suspect]
     Indication: ASTHMA
     Route: 058
     Dates: start: 20110315, end: 20111004
  3. PREDNISONE [Concomitant]
  4. VENTOLIN [Concomitant]

REACTIONS (4)
  - ALLERGIC GRANULOMATOUS ANGIITIS [None]
  - DRUG INEFFECTIVE [None]
  - BRONCHOPULMONARY ASPERGILLOSIS ALLERGIC [None]
  - PULMONARY EMBOLISM [None]
